FAERS Safety Report 11292640 (Version 1)
Quarter: 2015Q2

REPORT INFORMATION
  Report Type: Spontaneous
  Country: US (occurrence: None)
  Receive Date: 20150623
  Receipt Date: 20150623
  Transmission Date: 20150821
  Serious: Yes (Other)
  Sender: FDA-Public Use
  Company Number: RB-75233-2015

PATIENT
  Age: 54 Year
  Sex: Female

DRUGS (1)
  1. DEXTROMETHORPHAN/GUAIFENESIN 1200 MG (RB RECKITT BENCKISER)) [Suspect]
     Active Substance: DEXTROMETHORPHAN\GUAIFENESIN
     Indication: DRUG ABUSE
     Dosage: (PATIENT TOOK AS LITTLE AS 7 PILLS AND AS MANY AS 14 TABLETS ALL AT ONCE PER DAY UNKNOWN)

REACTIONS (4)
  - Intentional overdose [None]
  - Drug abuse [None]
  - Wrong technique in drug usage process [None]
  - Drug dependence [None]
